FAERS Safety Report 6267124-8 (Version None)
Quarter: 2009Q3

REPORT INFORMATION
  Report Type: 
  Country: None (occurrence: None)
  Receive Date: 20090714
  Receipt Date: 20090710
  Transmission Date: 20100115
  Serious: Yes (Other)
  Sender: FDA-Public Use
  Company Number: AU-PFIZER INC-2009218512

PATIENT

DRUGS (1)
  1. DALACIN [Suspect]
     Dosage: 150 MG, 4X/DAY

REACTIONS (3)
  - BLISTER [None]
  - RASH [None]
  - URTICARIA [None]
